FAERS Safety Report 7096548-4 (Version None)
Quarter: 2010Q4

REPORT INFORMATION
  Report Type: 
  Country: None (occurrence: None)
  Receive Date: 20101111
  Receipt Date: 20101104
  Transmission Date: 20110411
  Serious: Yes (Life-Threatening)
  Sender: FDA-Public Use
  Company Number: B0589219A

PATIENT
  Sex: Female
  Weight: 67 kg

DRUGS (7)
  1. TYKERB [Suspect]
     Indication: INFLAMMATORY CARCINOMA OF BREAST RECURRENT
     Dosage: 1250MG PER DAY
     Route: 048
     Dates: start: 20090709, end: 20090811
  2. XELODA [Concomitant]
     Indication: INFLAMMATORY CARCINOMA OF BREAST RECURRENT
     Dosage: 3600MG PER DAY
     Route: 048
     Dates: start: 20090709, end: 20090811
  3. PYDOXAL [Concomitant]
     Dosage: 60MG PER DAY
     Route: 048
     Dates: start: 20081026, end: 20090811
  4. DEPAKENE [Concomitant]
     Indication: BRAIN OPERATION
     Dosage: 800MG PER DAY
     Route: 048
     Dates: start: 20081016, end: 20090811
  5. PROMAC [Concomitant]
     Indication: GASTRITIS
     Dosage: 150MG PER DAY
     Route: 048
     Dates: start: 20090709, end: 20090811
  6. PURSENNID [Concomitant]
     Route: 048
     Dates: start: 20081016, end: 20090811
  7. MAGMITT [Concomitant]
     Indication: ANAL FISSURE
     Route: 048
     Dates: start: 20081016, end: 20090811

REACTIONS (7)
  - DYSPNOEA [None]
  - HYPERCAPNIA [None]
  - HYPOCAPNIA [None]
  - HYPOXIA [None]
  - INTERSTITIAL LUNG DISEASE [None]
  - MALAISE [None]
  - PYREXIA [None]
